FAERS Safety Report 11093360 (Version 1)
Quarter: 2015Q2

REPORT INFORMATION
  Report Type: Spontaneous
  Country: DE (occurrence: DE)
  Receive Date: 20150506
  Receipt Date: 20150506
  Transmission Date: 20150821
  Serious: Yes (Death, Hospitalization)
  Sender: FDA-Public Use
  Company Number: DE-TEVA-558566GER

PATIENT
  Age: 77 Year
  Sex: Male

DRUGS (1)
  1. METFORMIN [Suspect]
     Active Substance: METFORMIN HYDROCHLORIDE
     Indication: TYPE 2 DIABETES MELLITUS
     Dosage: 2000 MILLIGRAM DAILY;
     Dates: end: 2015

REACTIONS (3)
  - Lactic acidosis [Fatal]
  - Multi-organ failure [Fatal]
  - Vomiting [Fatal]

NARRATIVE: CASE EVENT DATE: 20150118
